FAERS Safety Report 5065362-3 (Version None)
Quarter: 2006Q3

REPORT INFORMATION
  Report Type: 
  Country: None (occurrence: None)
  Receive Date: 20060707
  Receipt Date: 20060418
  Transmission Date: 20061208
  Serious: Yes (Hospitalization)
  Sender: FDA-Public Use
  Company Number: SUS1-2006-00299

PATIENT
  Age: 17 Year
  Sex: Male

DRUGS (5)
  1. PENTASA [Suspect]
     Indication: COLITIS ULCERATIVE
     Dosage: SEE IMAGE
     Route: 048
     Dates: start: 20051107
  2. PENTASA [Suspect]
     Indication: COLITIS ULCERATIVE
     Dosage: SEE IMAGE
     Route: 048
     Dates: start: 20060227
  3. PENTASA [Suspect]
     Indication: COLITIS ULCERATIVE
     Dosage: SEE IMAGE
     Route: 048
     Dates: start: 20060304
  4. PENTASA [Suspect]
     Indication: COLITIS ULCERATIVE
     Dosage: SEE IMAGE
     Route: 048
     Dates: start: 20060314
  5. ALBUMIN TANNATE (ALBUMIN TANNATE) [Concomitant]

REACTIONS (1)
  - PANCREATITIS ACUTE [None]
